FAERS Safety Report 4878997-5 (Version None)
Quarter: 2006Q1

REPORT INFORMATION
  Report Type: 
  Country: None (occurrence: None)
  Receive Date: 20060110
  Receipt Date: 20060110
  Transmission Date: 20060701
  Serious: Yes (Hospitalization)
  Sender: FDA-Public Use
  Company Number: None

PATIENT
  Sex: Male
  Weight: 92 kg

DRUGS (4)
  1. FLUOROURACIL [Suspect]
     Indication: COLON CANCER
     Dosage: SEE IMAGE
     Route: 042
     Dates: start: 20051228
  2. BEVACIZUMAB [Suspect]
     Dosage: SEE IMAGE
     Route: 042
     Dates: end: 20051228
  3. LEUCOVORIN CALCIUM [Suspect]
     Dosage: SEE IMAGE
     Route: 042
     Dates: end: 20051228
  4. OXALIPLATIN [Suspect]
     Dosage: SEE IMAGE
     Route: 042
     Dates: end: 20051228

REACTIONS (4)
  - BURNING SENSATION [None]
  - GASTRITIS EROSIVE [None]
  - GASTROOESOPHAGEAL REFLUX DISEASE [None]
  - NON-CARDIAC CHEST PAIN [None]
